FAERS Safety Report 9696731 (Version 1)
Quarter: 2013Q4

REPORT INFORMATION
  Report Type: Spontaneous
  Country: US (occurrence: US)
  Receive Date: 20131119
  Receipt Date: 20131119
  Transmission Date: 20140711
  Serious: No
  Sender: FDA-Public Use
  Company Number: US-GILEAD-2007-0014494

PATIENT
  Age: 67 Year
  Sex: Female
  Weight: 88.45 kg

DRUGS (8)
  1. LETAIRIS [Suspect]
     Indication: PULMONARY ARTERIAL HYPERTENSION
     Route: 048
  2. NEURONTIN [Concomitant]
     Route: 048
  3. REVATIO [Concomitant]
     Route: 048
  4. COUMADIN [Concomitant]
     Route: 048
  5. DARVOCET-N 50 [Concomitant]
     Route: 048
  6. ATIVAN [Concomitant]
     Route: 048
  7. LASIX [Concomitant]
     Route: 048
  8. OXYGEN [Concomitant]
     Route: 045

REACTIONS (1)
  - Dyspnoea [Unknown]
